FAERS Safety Report 8292889-3 (Version None)
Quarter: 2012Q2

REPORT INFORMATION
  Report Type: 
  Country: None (occurrence: None)
  Receive Date: 20120417
  Receipt Date: 20110920
  Transmission Date: 20120825
  Serious: No
  Sender: FDA-Public Use
  Company Number: US-ASTRAZENECA-2011SE00981

PATIENT
  Age: 78 Year
  Sex: Female
  Weight: 82.6 kg

DRUGS (7)
  1. NEXIUM [Suspect]
     Indication: HIATUS HERNIA
     Route: 048
     Dates: end: 20100101
  2. ISOXSUTRINE [Concomitant]
     Indication: DIZZINESS
  3. HYDROCHLOROT [Concomitant]
  4. TRICOR [Concomitant]
  5. METOPROLOL TARTRATE [Concomitant]
     Indication: CARDIAC DISORDER
  6. XANAX [Concomitant]
  7. ASPIRIN [Concomitant]

REACTIONS (6)
  - NAUSEA [None]
  - MALAISE [None]
  - DIZZINESS [None]
  - ABDOMINAL PAIN UPPER [None]
  - HERNIA PAIN [None]
  - DRUG DOSE OMISSION [None]
